FAERS Safety Report 10003800 (Version 1)
Quarter: 2014Q1

REPORT INFORMATION
  Report Type: Report from Study
  Country: US (occurrence: US)
  Receive Date: 20140312
  Receipt Date: 20140312
  Transmission Date: 20141002
  Serious: No
  Sender: FDA-Public Use
  Company Number: US-ABBVIE-13P-163-1082259-00

PATIENT
  Sex: Female
  Weight: 113.5 kg

DRUGS (6)
  1. DEPAKOTE [Suspect]
     Indication: PANIC DISORDER
     Dates: start: 2013, end: 2013
  2. DEPAKOTE [Suspect]
     Indication: DEPRESSION
  3. DEPAKOTE [Suspect]
     Indication: BIPOLAR DISORDER
  4. DEPAKOTE ER [Suspect]
     Indication: DEPRESSION
     Dates: start: 2012
  5. DEPAKOTE ER [Suspect]
     Indication: BIPOLAR DISORDER
  6. DEPAKOTE ER [Suspect]
     Indication: PANIC DISORDER

REACTIONS (6)
  - Malaise [Recovered/Resolved]
  - Drug dispensing error [Unknown]
  - Rash [Not Recovered/Not Resolved]
  - Nausea [Recovered/Resolved]
  - Vomiting [Recovered/Resolved]
  - Off label use [Unknown]
